FAERS Safety Report 15265866 (Version 1)
Quarter: 2018Q3

REPORT INFORMATION
  Report Type: Spontaneous
  Country: DK (occurrence: DK)
  Receive Date: 20180810
  Receipt Date: 20180810
  Transmission Date: 20181010
  Serious: Yes (Other)
  Sender: FDA-Public Use
  Company Number: DK-PFIZER INC-2018318163

PATIENT
  Age: 41 Year
  Sex: Female

DRUGS (3)
  1. EFEXOR DEPOT [Suspect]
     Active Substance: VENLAFAXINE HYDROCHLORIDE
     Indication: DEPRESSION
     Dosage: 75 MG, UNK
     Route: 048
     Dates: start: 20061031
  2. CIPRALEX [Suspect]
     Active Substance: ESCITALOPRAM OXALATE
     Indication: DEPRESSION
     Dosage: MOST OF THE TIME TREATED WITH 20 MG
     Route: 048
     Dates: start: 2006
  3. ALOPAM [Suspect]
     Active Substance: OXAZEPAM
     Indication: ANXIETY
     Route: 048

REACTIONS (3)
  - Hypomania [Unknown]
  - Bipolar disorder [Unknown]
  - Sensory disturbance [Unknown]
